FAERS Safety Report 19304557 (Version 2)
Quarter: 2021Q3

REPORT INFORMATION
  Report Type: Report from Study
  Country: BR (occurrence: BR)
  Receive Date: 20210525
  Receipt Date: 20210721
  Transmission Date: 20211014
  Serious: Yes (Other)
  Sender: FDA-Public Use
  Company Number: BR-SHIRE-BR202028555

PATIENT
  Age: 18 Year
  Sex: Male
  Weight: 80 kg

DRUGS (6)
  1. DIPYRONE [Concomitant]
     Active Substance: DIPYRONE
     Indication: PYREXIA
  2. FACTOR VIII INHIBITOR BYPASSING FRACTION; BAXJECT II NF [Suspect]
     Active Substance: ANTI-INHIBITOR COAGULANT COMPLEX
     Dosage: 6000 INTERNATIONAL UNIT, 2X A WEEK
     Route: 042
     Dates: start: 2009
  3. FACTOR VIII INHIBITOR BYPASSING FRACTION; BAXJECT II NF [Suspect]
     Active Substance: ANTI-INHIBITOR COAGULANT COMPLEX
     Dosage: 7000 INTERNATIONAL UNIT, 2/WEEK
     Route: 042
     Dates: start: 202003
  4. FACTOR VIII INHIBITOR BYPASSING FRACTION; BAXJECT II NF [Suspect]
     Active Substance: ANTI-INHIBITOR COAGULANT COMPLEX
     Indication: FACTOR VIII DEFICIENCY
     Dosage: 6000 INTERNATIONAL UNIT, 2X A WEEK
     Route: 042
     Dates: start: 2009
  5. FACTOR VIII INHIBITOR BYPASSING FRACTION; BAXJECT II NF [Suspect]
     Active Substance: ANTI-INHIBITOR COAGULANT COMPLEX
     Dosage: 6000 INTERNATIONAL UNIT, 3X A WEEK
     Route: 042
  6. DIPYRONE [Concomitant]
     Active Substance: DIPYRONE
     Indication: PAIN
     Route: 048

REACTIONS (7)
  - Drug ineffective [Unknown]
  - Suspected COVID-19 [Not Recovered/Not Resolved]
  - Joint swelling [Recovered/Resolved]
  - Headache [Not Recovered/Not Resolved]
  - Anosmia [Not Recovered/Not Resolved]
  - Peripheral swelling [Recovering/Resolving]
  - Weight increased [Not Recovered/Not Resolved]

NARRATIVE: CASE EVENT DATE: 202008
